FAERS Safety Report 4641167-X (Version None)
Quarter: 2005Q2

REPORT INFORMATION
  Report Type: 
  Country: None (occurrence: None)
  Receive Date: 20050421
  Receipt Date: 20050309
  Transmission Date: 20051028
  Serious: Yes (Death, Life-Threatening, Hospitalization)
  Sender: FDA-Public Use
  Company Number: DE-BRISTOL-MYERS SQUIBB COMPANY-12891008

PATIENT
  Age: 66 Year
  Sex: Male

DRUGS (5)
  1. CISPLATIN [Suspect]
     Indication: SMALL CELL LUNG CANCER STAGE UNSPECIFIED
     Dosage: INITIAL DOSE: 08-JAN-2005
     Route: 042
     Dates: start: 20050128, end: 20050128
  2. ETOPOSIDE [Suspect]
     Indication: SMALL CELL LUNG CANCER STAGE UNSPECIFIED
     Dosage: INITIAL COURSE: 08-JAN-2005 TO 10-JAN-2005
     Route: 042
     Dates: start: 20050128, end: 20050130
  3. METOPROLOL SUCCINATE [Concomitant]
  4. FORTECORTIN [Concomitant]
     Dates: start: 20050101
  5. NEXIUM [Concomitant]
     Dates: start: 20050101

REACTIONS (1)
  - ASPERGILLOSIS [None]
